FAERS Safety Report 21682399 (Version 1)
Quarter: 2022Q4

REPORT INFORMATION
  Report Type: Other
  Country: US (occurrence: None)
  Receive Date: 20221205
  Receipt Date: 20221205
  Transmission Date: 20230113
  Serious: Yes (Other)
  Sender: FDA-Public Use
  Company Number: US-ROCHE-3227124

PATIENT
  Age: 64 Year
  Sex: Female

DRUGS (1)
  1. OCREVUS [Suspect]
     Active Substance: OCRELIZUMAB
     Indication: Relapsing-remitting multiple sclerosis
     Dosage: 300 MG ON DAY 1 AND DAY 15 THEN 600 MG EVERY 6 MONTHS
     Route: 042
     Dates: start: 20190519

REACTIONS (2)
  - COVID-19 [Not Recovered/Not Resolved]
  - Urinary tract infection [Not Recovered/Not Resolved]
